FAERS Safety Report 24747252 (Version 1)
Quarter: 2024Q4

REPORT INFORMATION
  Report Type: Spontaneous
  Country: AZ (occurrence: AZ)
  Receive Date: 20241218
  Receipt Date: 20241218
  Transmission Date: 20250115
  Serious: Yes (Other)
  Sender: NOVARTIS
  Company Number: AZ-002147023-NVSC2024AZ223191

PATIENT
  Age: 39 Year
  Sex: Male

DRUGS (1)
  1. SECUKINUMAB [Suspect]
     Active Substance: SECUKINUMAB
     Indication: Psoriasis
     Dosage: 150 MG (FIRST MONTH 5 INJECTIONS AND1 IN THE FOLLOWING MONTH)
     Route: 065

REACTIONS (1)
  - Otorrhoea [Recovered/Resolved]
